FAERS Safety Report 4387639-7 (Version None)
Quarter: 2004Q2

REPORT INFORMATION
  Report Type: 
  Country: None (occurrence: None)
  Receive Date: 20040630
  Receipt Date: 20040524
  Transmission Date: 20050107
  Serious: No
  Sender: FDA-Public Use
  Company Number: US-GLAXOSMITHKLINE-A0511918A

PATIENT
  Age: 76 Year
  Sex: Female

DRUGS (11)
  1. ADVAIR HFA [Suspect]
     Dosage: 1PUFF TWICE PER DAY
     Route: 055
  2. ASPIRIN [Concomitant]
  3. PREMARIN [Concomitant]
  4. PROMETRIUM [Concomitant]
  5. SYNTHROID [Concomitant]
  6. ALTACE [Concomitant]
  7. ZOCOR [Concomitant]
  8. ZYRTEC [Concomitant]
  9. VIOXX [Concomitant]
  10. CELEBREX [Concomitant]
  11. ASTELIN [Concomitant]

REACTIONS (4)
  - BLISTER [None]
  - PHARMACEUTICAL PRODUCT COMPLAINT [None]
  - RASH [None]
  - RASH ERYTHEMATOUS [None]
